FAERS Safety Report 10334160 (Version 1)
Quarter: 2014Q3

REPORT INFORMATION
  Report Type: Spontaneous
  Country: US (occurrence: None)
  Receive Date: 20140721
  Receipt Date: 20140721
  Transmission Date: 20150326
  Serious: Yes (Disabling)
  Sender: FDA-Public Use
  Company Number: None

PATIENT
  Age: 63 Year
  Sex: Female
  Weight: 56.25 kg

DRUGS (1)
  1. SEPTRA DS [Suspect]
     Active Substance: SULFAMETHOXAZOLE\TRIMETHOPRIM
     Indication: SINUSITIS
     Route: 048
     Dates: start: 20120224, end: 20120304

REACTIONS (4)
  - Fatigue [None]
  - Weight decreased [None]
  - Hepatitis [None]
  - Feeling abnormal [None]

NARRATIVE: CASE EVENT DATE: 20120224
